FAERS Safety Report 5758869-4 (Version None)
Quarter: 2008Q2

REPORT INFORMATION
  Report Type: 
  Country: None (occurrence: None)
  Receive Date: 20080603
  Receipt Date: 20080603
  Transmission Date: 20081010
  Serious: Yes (Other)
  Sender: FDA-Public Use
  Company Number: None

PATIENT
  Age: 37 Year
  Sex: Male
  Weight: 60.3284 kg

DRUGS (1)
  1. CREST PRO-HEALTH NIGHT NA PROCTER AND GAMBLE [Suspect]
     Indication: DENTAL CARE
     Dosage: 20 ML DAILY BEFORE BED PO
     Route: 048
     Dates: start: 20080501, end: 20080530

REACTIONS (1)
  - TOOTH DISCOLOURATION [None]
